FAERS Safety Report 9899380 (Version 4)
Quarter: 2014Q2

REPORT INFORMATION
  Report Type: Report from Study
  Country: TW (occurrence: TW)
  Receive Date: 20140214
  Receipt Date: 20140523
  Transmission Date: 20141212
  Serious: Yes (Other)
  Sender: FDA-Public Use
  Company Number: TW-ABBVIE-14P-153-1199953-00

PATIENT
  Age: 48 Year
  Sex: Male
  Weight: 78 kg

DRUGS (4)
  1. HUMIRA [Suspect]
     Indication: PSORIATIC ARTHROPATHY
     Route: 058
     Dates: start: 20131228, end: 20140225
  2. CENTELLA ASIATICA [Concomitant]
     Indication: PRODUCT USED FOR UNKNOWN INDICATION
     Dosage: 100MG/10G
     Route: 061
  3. FUSIDIC ACID [Concomitant]
     Indication: PRODUCT USED FOR UNKNOWN INDICATION
     Dosage: 100MG/5G
     Route: 061
  4. ETORICOXIB [Concomitant]
     Indication: PRODUCT USED FOR UNKNOWN INDICATION
     Dosage: #1
     Route: 048

REACTIONS (2)
  - Skin ulcer [Recovering/Resolving]
  - Psoriasis [Recovering/Resolving]
